FAERS Safety Report 10759987 (Version 1)
Quarter: 2015Q1

REPORT INFORMATION
  Report Type: Spontaneous
  Country: DK (occurrence: DE)
  Receive Date: 20150203
  Receipt Date: 20150203
  Transmission Date: 20150721
  Serious: Yes (Congenital Anomaly)
  Sender: FDA-Public Use
  Company Number: DE-FRI-1000074139

PATIENT
  Age: 0 Year
  Sex: Male
  Weight: 3.7 kg

DRUGS (4)
  1. CITALOPRAM [Suspect]
     Active Substance: CITALOPRAM HYDROBROMIDE
     Indication: DEPRESSION
     Dosage: 30 MG
     Route: 064
  2. PROGESTERON [Concomitant]
     Indication: PROPHYLAXIS OF ABORTION
     Dosage: 50 MG
     Route: 064
     Dates: start: 20131230, end: 20140203
  3. FEMIBION [Concomitant]
     Active Substance: VITAMINS
     Indication: PROPHYLAXIS OF NEURAL TUBE DEFECT
     Route: 064
     Dates: start: 20131230, end: 20140203
  4. AMITRIPTYLINE-FORM-UNKNOWN [Suspect]
     Active Substance: AMITRIPTYLINE
     Indication: SLEEP DISORDER
     Dosage: 25 MG
     Route: 064

REACTIONS (3)
  - Foetal exposure during pregnancy [Recovered/Resolved with Sequelae]
  - Maternal drugs affecting foetus [None]
  - Talipes [Recovered/Resolved with Sequelae]
